FAERS Safety Report 5140222-8 (Version None)
Quarter: 2006Q4

REPORT INFORMATION
  Report Type: 
  Country: None (occurrence: None)
  Receive Date: 20061031
  Receipt Date: 20061017
  Transmission Date: 20070319
  Serious: Yes (Hospitalization)
  Sender: FDA-Public Use
  Company Number: PHBS2006JP16160

PATIENT
  Age: 58 Year
  Sex: Male

DRUGS (3)
  1. TAXOTERE [Concomitant]
     Dosage: 60 MG/D
     Route: 042
  2. LOXONIN [Concomitant]
     Route: 048
     Dates: start: 20060801
  3. ZOMETA [Suspect]
     Indication: METASTASES TO BONE
     Dosage: 4 MG, ONCE/SINGLE
     Route: 042
     Dates: start: 20061003, end: 20061003

REACTIONS (5)
  - ASPARTATE AMINOTRANSFERASE INCREASED [None]
  - EPISCLERITIS [None]
  - EYELID OEDEMA [None]
  - HEPATIC FUNCTION ABNORMAL [None]
  - MYALGIA [None]
